FAERS Safety Report 21154768 (Version 5)
Quarter: 2022Q4

REPORT INFORMATION
  Report Type: Spontaneous
  Country: US (occurrence: US)
  Receive Date: 20220801
  Receipt Date: 20221013
  Transmission Date: 20230113
  Serious: Yes (Other)
  Sender: FDA-Public Use
  Company Number: US-PFIZER INC-202200829445

PATIENT
  Age: 67 Year
  Sex: Female
  Weight: 72.562 kg

DRUGS (1)
  1. GENOTROPIN [Suspect]
     Active Substance: SOMATROPIN
     Dosage: 12 MG, DAILY

REACTIONS (2)
  - Expired device used [Unknown]
  - Device issue [Unknown]

NARRATIVE: CASE EVENT DATE: 20220404
